FAERS Safety Report 15752841 (Version 1)
Quarter: 2018Q4

REPORT INFORMATION
  Report Type: Spontaneous
  Country: SK (occurrence: SK)
  Receive Date: 20181221
  Receipt Date: 20181221
  Transmission Date: 20190205
  Serious: Yes (Life-Threatening)
  Sender: FDA-Public Use
  Company Number: PHHY2018SK192121

PATIENT
  Age: 44 Year
  Sex: Female

DRUGS (1)
  1. VOLTAREN [Suspect]
     Active Substance: DICLOFENAC SODIUM
     Indication: DYSMENORRHOEA
     Dosage: 25 MG, UNK (AS NECESSARY)
     Route: 048
     Dates: start: 20181130, end: 20181130

REACTIONS (5)
  - Oedema mouth [Unknown]
  - Rash [Unknown]
  - Speech disorder [Unknown]
  - Dyspnoea [Unknown]
  - Oedema peripheral [Recovering/Resolving]

NARRATIVE: CASE EVENT DATE: 20181130
